FAERS Safety Report 9321181 (Version 3)
Quarter: 2013Q2

REPORT INFORMATION
  Report Type: Spontaneous
  Country: CA (occurrence: CA)
  Receive Date: 20130531
  Receipt Date: 20130607
  Transmission Date: 20140414
  Serious: Yes (Hospitalization)
  Sender: FDA-Public Use
  Company Number: CA-ROCHE-1230760

PATIENT
  Age: 58 Year
  Sex: Female
  Weight: 63 kg

DRUGS (6)
  1. XELODA [Suspect]
     Indication: BREAST CANCER METASTATIC
     Route: 048
     Dates: start: 20130405, end: 20130527
  2. STEMETIL [Suspect]
     Indication: NAUSEA
     Dosage: AS REQUIRED
     Route: 048
     Dates: start: 201301, end: 20130528
  3. CLONAZEPAM [Concomitant]
     Indication: ANXIETY
     Route: 048
     Dates: start: 201301
  4. TEMAZEPAM [Concomitant]
     Route: 048
  5. MORPHINE [Concomitant]
     Indication: PAIN
     Dosage: AS NEEDED
     Route: 048
     Dates: start: 201303, end: 20130520
  6. SINEMET [Concomitant]

REACTIONS (1)
  - Parkinsonism [Recovering/Resolving]
